FAERS Safety Report 7450657-6 (Version None)
Quarter: 2011Q2

REPORT INFORMATION
  Report Type: 
  Country: None (occurrence: None)
  Receive Date: 20110429
  Receipt Date: 20110429
  Transmission Date: 20111010
  Serious: Yes (Life-Threatening, Other)
  Sender: FDA-Public Use
  Company Number: None

PATIENT
  Sex: Female
  Weight: 59.8748 kg

DRUGS (2)
  1. NAPROSYN [Suspect]
     Indication: ARTHRITIS
     Dosage: 500 MG ONCE A DAY
     Dates: start: 20110402
  2. NAPROSYN [Suspect]
     Indication: ARTHRITIS
     Dosage: 500 MG ONCE A DAY
     Dates: start: 19950820

REACTIONS (3)
  - RECTAL HAEMORRHAGE [None]
  - HAEMORRHAGE [None]
  - EPISTAXIS [None]
